FAERS Safety Report 18787299 (Version 1)
Quarter: 2021Q1

REPORT INFORMATION
  Report Type: Spontaneous
  Country: US (occurrence: US)
  Receive Date: 20210126
  Receipt Date: 20210126
  Transmission Date: 20210419
  Serious: Yes (Death, Life-Threatening)
  Sender: FDA-Public Use
  Company Number: US-PFIZER INC-2021053524

PATIENT
  Age: 21 Year
  Sex: Male

DRUGS (3)
  1. BLEOMYCIN SULFATE [Suspect]
     Active Substance: BLEOMYCIN SULFATE
     Indication: GERM CELL CANCER
     Dosage: 30 IU, CYCLIC(DAYS 2,9 AND 16
  2. PLATINUM [Suspect]
     Active Substance: PLATINUM
     Indication: GERM CELL CANCER
     Dosage: UNK
  3. VP?16 [Suspect]
     Active Substance: ETOPOSIDE
     Indication: GERM CELL CANCER
     Dosage: HIGH DOSE

REACTIONS (1)
  - Myocardial infarction [Fatal]
